FAERS Safety Report 7119874-9 (Version None)
Quarter: 2010Q4

REPORT INFORMATION
  Report Type: 
  Country: None (occurrence: None)
  Receive Date: 20101123
  Receipt Date: 20101018
  Transmission Date: 20110411
  Serious: No
  Sender: FDA-Public Use
  Company Number: US-BRISTOL-MYERS SQUIBB COMPANY-15295819

PATIENT
  Age: 55 Year
  Sex: Female

DRUGS (3)
  1. ONGLYZA [Suspect]
     Dates: start: 20100917
  2. MAGNESIUM [Concomitant]
  3. VITAMIN B COMPLEX CAP [Concomitant]

REACTIONS (2)
  - CRYING [None]
  - PRURITUS [None]
